FAERS Safety Report 4598867-X (Version None)
Quarter: 2005Q1

REPORT INFORMATION
  Report Type: 
  Country: None (occurrence: None)
  Receive Date: 20050301
  Receipt Date: 20050107
  Transmission Date: 20050727
  Serious: Yes (Other)
  Sender: FDA-Public Use
  Company Number: 2005026715

PATIENT
  Age: 58 Year
  Sex: Female
  Weight: 57.1532 kg

DRUGS (1)
  1. BEXTRA [Suspect]
     Indication: PAIN
     Dosage: ORAL
     Route: 048
     Dates: start: 20041005, end: 20041201

REACTIONS (2)
  - EXCORIATION [None]
  - PURPURA [None]
